FAERS Safety Report 5087238-8 (Version None)
Quarter: 2006Q3

REPORT INFORMATION
  Report Type: 
  Country: None (occurrence: None)
  Receive Date: 20060821
  Receipt Date: 20060803
  Transmission Date: 20061208
  Serious: Yes (Death)
  Sender: FDA-Public Use
  Company Number: 6024778

PATIENT
  Age: 58 Year
  Sex: Female

DRUGS (8)
  1. DETENSIEL (5 MG, TABLET) (BISOPROLOL FUMARATE) [Suspect]
     Indication: CARDIAC FAILURE
     Dosage: 10 MG (10 MG, TOTAL) ORAL
     Route: 048
     Dates: start: 20060209, end: 20060209
  2. DETENSIEL (5 MG, TABLET) (BISOPROLOL FUMARATE) [Suspect]
     Indication: CARDIAC FAILURE
     Dosage: 10 MG (10 MG, TOTAL) ORAL
     Route: 048
     Dates: start: 20060209, end: 20060209
  3. LASIX [Suspect]
     Indication: CARDIAC FAILURE
     Dosage: 20 MG + 60 MG (20 MG, 1D), ORAL
     Route: 048
     Dates: start: 20060209, end: 20060209
  4. LASIX [Suspect]
     Indication: CARDIAC FAILURE
     Dosage: 20 MG + 60 MG (20 MG, 1D), ORAL
     Route: 048
     Dates: start: 20060208
  5. COVERSYL (PERINOPRIL) [Concomitant]
  6. CORDARONE [Concomitant]
  7. COUMADIN [Concomitant]
  8. CYCLOPHOSPHAMIDE [Concomitant]

REACTIONS (3)
  - CARDIAC FAILURE [None]
  - CARDIOGENIC SHOCK [None]
  - METABOLIC ACIDOSIS [None]
